FAERS Safety Report 9038514 (Version 1)
Quarter: 2013Q1

REPORT INFORMATION
  Report Type: Report from Study
  Country: US (occurrence: US)
  Receive Date: 20130129
  Receipt Date: 20130129
  Transmission Date: 20140127
  Serious: No
  Sender: FDA-Public Use
  Company Number: US-ABBOTT-12P-163-0934988-00

PATIENT
  Sex: Male

DRUGS (11)
  1. HUMIRA 40 MG/0.8 ML PEN [Suspect]
     Indication: PSORIATIC ARTHROPATHY
  2. CREON [Suspect]
     Indication: ENZYME ABNORMALITY
     Dates: start: 2011
  3. HYDROCODONE [Concomitant]
     Indication: PAIN
  4. HYDROCODONE [Concomitant]
     Indication: PAIN
  5. HYDROCODONE [Concomitant]
     Indication: PAIN
  6. HYDROCODONE [Concomitant]
     Indication: OSTEOARTHRITIS
  7. HYDROCODONE [Concomitant]
     Indication: FIBROMYALGIA
  8. HYDROCODONE [Concomitant]
     Indication: PSORIATIC ARTHROPATHY
  9. LOVAZA [Concomitant]
     Indication: BLOOD CHOLESTEROL INCREASED
  10. CRESTOR [Concomitant]
     Indication: BLOOD CHOLESTEROL INCREASED
  11. VITAMIN B12 [Concomitant]
     Indication: PRODUCT USED FOR UNKNOWN INDICATION

REACTIONS (12)
  - Lymphadenopathy [Not Recovered/Not Resolved]
  - Lymphadenopathy [Unknown]
  - Bronchitis chronic [Not Recovered/Not Resolved]
  - Prostatitis [Not Recovered/Not Resolved]
  - Aspartate aminotransferase increased [Unknown]
  - Blood glucose increased [Unknown]
  - Blood phosphorus increased [Unknown]
  - Lipids increased [Unknown]
  - Abdominal pain upper [Not Recovered/Not Resolved]
  - Diarrhoea [Not Recovered/Not Resolved]
  - Defaecation urgency [Not Recovered/Not Resolved]
  - Enzyme abnormality [Not Recovered/Not Resolved]
